FAERS Safety Report 9584011 (Version 1)
Quarter: 2013Q4

REPORT INFORMATION
  Report Type: Spontaneous
  Country: US (occurrence: US)
  Receive Date: 20131002
  Receipt Date: 20131002
  Transmission Date: 20140711
  Serious: No
  Sender: FDA-Public Use
  Company Number: US-AMGEN-USASP2013050852

PATIENT
  Age: 54 Year
  Sex: Female
  Weight: 81.63 kg

DRUGS (10)
  1. ENBREL [Suspect]
     Indication: PRODUCT USED FOR UNKNOWN INDICATION
     Dosage: 50 MG, QWK
     Route: 058
  2. HYDROCORT                          /00028602/ [Concomitant]
     Dosage: 1 %, UNK
  3. METOPROLOL [Concomitant]
     Dosage: 50 MG, ER
  4. LOVASTATIN [Concomitant]
     Dosage: 20 MG, UNK
  5. ZOLOFT [Concomitant]
     Dosage: 25 MG, UNK
  6. ETODOLAC [Concomitant]
     Dosage: 500 MG, UNK
  7. MULTIVITAMINS, PLAIN [Concomitant]
     Dosage: UNK
  8. TRAMADOL HCL [Concomitant]
     Dosage: 50 MG, UNK
  9. TYLENOL WITH CODEIN #3 [Concomitant]
  10. ALPRAZOLAM [Concomitant]
     Dosage: 0.25 MG, UNK

REACTIONS (2)
  - Sinusitis [Unknown]
  - Injection site erythema [Recovered/Resolved]
